FAERS Safety Report 16462923 (Version 2)
Quarter: 2019Q2

REPORT INFORMATION
  Report Type: Spontaneous
  Country: IN (occurrence: IN)
  Receive Date: 20190621
  Receipt Date: 20190629
  Transmission Date: 20190711
  Serious: Yes (Other)
  Sender: FDA-Public Use
  Company Number: IN-MACLEODS PHARMACEUTICALS US LTD-MAC2019021760

PATIENT

DRUGS (3)
  1. LEVOFLOXACIN 500 MG TABLET [Suspect]
     Active Substance: LEVOFLOXACIN
     Indication: ACUTE SINUSITIS
     Dosage: 500 MILLIGRAM, QD TABLET
     Route: 048
  2. NAPHAZOLINE [Concomitant]
     Active Substance: NAPHAZOLINE\NAPHAZOLINE HYDROCHLORIDE
     Indication: PRODUCT USED FOR UNKNOWN INDICATION
     Dosage: NASAL DECONGESTANT DROPS, 6 PER HOUR
     Route: 045
  3. PARACETAMOL [Concomitant]
     Active Substance: ACETAMINOPHEN
     Indication: ACUTE SINUSITIS
     Dosage: 500 MILLIGRAM, 6 PER HOUR IF NECESSARY
     Route: 065

REACTIONS (2)
  - Anxiety [Recovered/Resolved]
  - Hallucination, tactile [Recovered/Resolved]
